FAERS Safety Report 13865577 (Version 1)
Quarter: 2017Q3

REPORT INFORMATION
  Report Type: Report from Study
  Country: US (occurrence: US)
  Receive Date: 20170814
  Receipt Date: 20170814
  Transmission Date: 20171127
  Serious: Yes (Hospitalization, Other)
  Sender: FDA-Public Use
  Company Number: US-GILEAD-2017-0284306

PATIENT
  Age: 49 Year
  Sex: Female
  Weight: 101.59 kg

DRUGS (10)
  1. XIFAXAN [Concomitant]
     Active Substance: RIFAXIMIN
  2. ALDACTONE [Concomitant]
     Active Substance: SPIRONOLACTONE
  3. LEDIPASVIR/SOFOSBUVIR [Suspect]
     Active Substance: LEDIPASVIR\SOFOSBUVIR
     Indication: CHRONIC HEPATITIS C
     Dosage: 1 DF, UNK
     Route: 048
     Dates: start: 2015, end: 2015
  4. PROTONIX                           /00661201/ [Concomitant]
     Active Substance: OMEPRAZOLE
  5. LANTUS [Concomitant]
     Active Substance: INSULIN GLARGINE
  6. CARAFATE [Concomitant]
     Active Substance: SUCRALFATE
  7. TENORMIN [Concomitant]
     Active Substance: ATENOLOL
  8. LASIX [Concomitant]
     Active Substance: FUROSEMIDE
  9. NOVOLOG [Concomitant]
     Active Substance: INSULIN ASPART
  10. FERROUS SULFATE. [Concomitant]
     Active Substance: FERROUS SULFATE

REACTIONS (2)
  - Oesophageal varices haemorrhage [Recovering/Resolving]
  - Drug ineffective [Not Recovered/Not Resolved]
